FAERS Safety Report 13338635 (Version 3)
Quarter: 2017Q2

REPORT INFORMATION
  Report Type: Report from Study
  Country: US (occurrence: US)
  Receive Date: 20170315
  Receipt Date: 20170606
  Transmission Date: 20170830
  Serious: Yes (Hospitalization, Other)
  Sender: FDA-Public Use
  Company Number: US-GILEAD-2017-0262046

PATIENT
  Age: 57 Year
  Sex: Male
  Weight: 84 kg

DRUGS (10)
  1. AMBRISENTAN [Suspect]
     Active Substance: AMBRISENTAN
     Indication: PULMONARY HYPERTENSION
     Dosage: 10 MG, QD
     Route: 065
  2. SOTALOL. [Concomitant]
     Active Substance: SOTALOL
  3. AMBRISENTAN [Suspect]
     Active Substance: AMBRISENTAN
     Indication: SYSTEMIC LUPUS ERYTHEMATOSUS
  4. BUMEX [Concomitant]
     Active Substance: BUMETANIDE
  5. TREPROSTINIL [Concomitant]
     Active Substance: TREPROSTINIL
  6. PREDNISONE. [Concomitant]
     Active Substance: PREDNISONE
  7. SYMBICORT [Concomitant]
     Active Substance: BUDESONIDE\FORMOTEROL FUMARATE DIHYDRATE
  8. AMBRISENTAN [Suspect]
     Active Substance: AMBRISENTAN
     Indication: CHRONIC OBSTRUCTIVE PULMONARY DISEASE
  9. ADEMPAS [Concomitant]
     Active Substance: RIOCIGUAT
  10. METOLAZONE. [Concomitant]
     Active Substance: METOLAZONE

REACTIONS (4)
  - Fall [Unknown]
  - Haematoma [Recovered/Resolved]
  - Pain [Unknown]
  - Wound [Unknown]
